FAERS Safety Report 19839463 (Version 1)
Quarter: 2021Q3

REPORT INFORMATION
  Report Type: Spontaneous
  Country: US (occurrence: US)
  Receive Date: 20210914
  Receipt Date: 20210914
  Transmission Date: 20211014
  Serious: No
  Sender: FDA-Public Use
  Company Number: None

PATIENT
  Age: 64 Year
  Sex: Male

DRUGS (8)
  1. LENALIDOMIDE [Concomitant]
     Active Substance: LENALIDOMIDE
  2. REVLIMID [Suspect]
     Active Substance: LENALIDOMIDE
     Indication: PLASMA CELL MYELOMA
     Route: 048
     Dates: start: 20210622
  3. ACYCLOVIR. [Concomitant]
     Active Substance: ACYCLOVIR
  4. ISATUXIMAB [Concomitant]
     Active Substance: ISATUXIMAB
  5. ZOFRAN [Concomitant]
     Active Substance: ONDANSETRON HYDROCHLORIDE
  6. ALLOPUORINOL [Concomitant]
  7. DEXAMETHASONE. [Concomitant]
     Active Substance: DEXAMETHASONE
  8. ATENOLOL. [Concomitant]
     Active Substance: ATENOLOL

REACTIONS (3)
  - Pruritus [None]
  - Periorbital swelling [None]
  - Erythema [None]

NARRATIVE: CASE EVENT DATE: 20210827
